FAERS Safety Report 7932203-3 (Version None)
Quarter: 2011Q4

REPORT INFORMATION
  Report Type: 
  Country: None (occurrence: None)
  Receive Date: 20111121
  Receipt Date: 20110110
  Transmission Date: 20120403
  Serious: No
  Sender: FDA-Public Use
  Company Number: US-AMGEN-USASP2011001585

PATIENT

DRUGS (7)
  1. VECTIBIX [Suspect]
     Indication: PRODUCT USED FOR UNKNOWN INDICATION
  2. PREDNISONE TAB [Concomitant]
  3. PEPCID AC [Concomitant]
  4. EPIPEN                             /00003901/ [Concomitant]
  5. METHYLPREDNISOLONE [Concomitant]
  6. BENADRYL [Concomitant]
  7. ZANTAC                             /00550801/ [Concomitant]

REACTIONS (1)
  - SKIN TOXICITY [None]
